FAERS Safety Report 4894790-1 (Version None)
Quarter: 2006Q1

REPORT INFORMATION
  Report Type: 
  Country: None (occurrence: None)
  Receive Date: 20060126
  Receipt Date: 20060126
  Transmission Date: 20060701
  Serious: No
  Sender: FDA-Public Use
  Company Number: None

PATIENT
  Age: 69 Year
  Sex: Female
  Weight: 66.6788 kg

DRUGS (2)
  1. PROMETHAZINE [Suspect]
     Indication: NAUSEA
     Dosage: 25 MG   Q 4 HRS PRN   IV BOLUS
     Route: 040
     Dates: start: 20060124, end: 20060124
  2. PROMETHAZINE [Suspect]
     Indication: VOMITING
     Dosage: 25 MG   Q 4 HRS PRN   IV BOLUS
     Route: 040
     Dates: start: 20060124, end: 20060124

REACTIONS (1)
  - RASH [None]
